FAERS Safety Report 24976412 (Version 1)
Quarter: 2025Q1

REPORT INFORMATION
  Report Type: Spontaneous
  Country: GB (occurrence: GB)
  Receive Date: 20250217
  Receipt Date: 20250217
  Transmission Date: 20250408
  Serious: Yes (Disabling, Other)
  Sender: DEXCEL
  Company Number: None

PATIENT
  Sex: Male

DRUGS (1)
  1. OMEPRAZOLE [Suspect]
     Active Substance: OMEPRAZOLE
     Dosage: 20MG ONCE A DAY
     Dates: start: 20241018, end: 20241019

REACTIONS (11)
  - Chest pain [Not Recovered/Not Resolved]
  - Brain fog [Not Recovered/Not Resolved]
  - Headache [Not Recovered/Not Resolved]
  - Fatigue [Not Recovered/Not Resolved]
  - Panic attack [Recovering/Resolving]
  - Anxiety [Recovering/Resolving]
  - Nausea [Not Recovered/Not Resolved]
  - Asthenia [Not Recovered/Not Resolved]
  - Disturbance in attention [Recovering/Resolving]
  - Vision blurred [Not Recovered/Not Resolved]
  - Food intolerance [Not Recovered/Not Resolved]
